FAERS Safety Report 10205251 (Version 2)
Quarter: 2014Q2

REPORT INFORMATION
  Report Type: Spontaneous
  Country: DK (occurrence: AU)
  Receive Date: 20140529
  Receipt Date: 20140529
  Transmission Date: 20141212
  Serious: Yes (Death, Life-Threatening, Hospitalization, Other)
  Sender: FDA-Public Use
  Company Number: AU-FRI-1000066507

PATIENT
  Age: 17 Year
  Sex: Female

DRUGS (2)
  1. ESCITALOPRAM [Suspect]
     Indication: DEPRESSED MOOD
     Dosage: 10 MG
     Route: 048
     Dates: start: 20140220, end: 20140228
  2. ESCITALOPRAM [Suspect]
     Indication: DEPRESSION

REACTIONS (3)
  - Thrombocytopenia [Fatal]
  - Purpura [Fatal]
  - Off label use [Unknown]
